FAERS Safety Report 23972171 (Version 1)
Quarter: 2024Q2

REPORT INFORMATION
  Report Type: Spontaneous
  Country: US (occurrence: US)
  Receive Date: 20240613
  Receipt Date: 20240613
  Transmission Date: 20240716
  Serious: No
  Sender: FDA-Public Use
  Company Number: US-INSUD PHARMA-2406US04613

PATIENT

DRUGS (2)
  1. PROGESTERONE [Suspect]
     Active Substance: PROGESTERONE
     Indication: Hormone replacement therapy
     Dosage: UNK
     Dates: start: 20240530
  2. PROGESTERONE [Suspect]
     Active Substance: PROGESTERONE
     Indication: Postmenopause
     Dosage: UNKNOWN

REACTIONS (6)
  - Gastrointestinal disorder [Not Recovered/Not Resolved]
  - Nausea [Not Recovered/Not Resolved]
  - Poor quality product administered [Unknown]
  - Product odour abnormal [Unknown]
  - Product substitution issue [Unknown]
  - Product use in unapproved indication [Unknown]

NARRATIVE: CASE EVENT DATE: 20240501
